FAERS Safety Report 14908712 (Version 1)
Quarter: 2018Q2

REPORT INFORMATION
  Report Type: Spontaneous
  Country: US (occurrence: US)
  Receive Date: 20180517
  Receipt Date: 20180517
  Transmission Date: 20180711
  Serious: No
  Sender: FDA-Public Use
  Company Number: US-PFIZER INC-2018201064

PATIENT

DRUGS (2)
  1. GABAPENTIN. [Suspect]
     Active Substance: GABAPENTIN
     Dosage: UNK, EVERY 4 HRS
  2. TRAMADOL. [Suspect]
     Active Substance: TRAMADOL
     Dosage: UNK, EVERY 4 HRS (2 TRAMADOL )

REACTIONS (1)
  - Drug ineffective [Unknown]
